FAERS Safety Report 10028693 (Version 2)
Quarter: 2014Q2

REPORT INFORMATION
  Report Type: Spontaneous
  Country: DE (occurrence: DE)
  Receive Date: 20140321
  Receipt Date: 20140408
  Transmission Date: 20141212
  Serious: Yes (Hospitalization, Other)
  Sender: FDA-Public Use
  Company Number: DE-TEVA-469839GER

PATIENT
  Age: 60 Year
  Sex: Male

DRUGS (15)
  1. FENTANYL TTS [Suspect]
     Indication: ABDOMINAL PAIN
     Dosage: INCREASED FROM PRIMARILY 25 MICROGRAMS/H TO 275 MICROGRAMS/HOUR WITHIN 4 MONTHS
     Route: 062
  2. FENTANYL NASENSPRAY [Suspect]
     Indication: ABDOMINAL PAIN
     Dosage: 1 DOSAGE FORM CONTAINS 200 MICROG/PUFF, 8-20 DOSES/DAY
     Route: 045
  3. GABAPENTIN [Concomitant]
     Dosage: 1200 MILLIGRAM DAILY; 1-1-2
     Route: 065
  4. PREGABALIN [Concomitant]
     Dosage: 50 MILLIGRAM DAILY; 1-0-0
     Route: 065
  5. MIRTAZAPIN [Concomitant]
     Dosage: 15 MILLIGRAM DAILY; 0-0-1
     Route: 065
  6. CITALOPRAM [Concomitant]
     Dosage: 40 MILLIGRAM DAILY; 1-0-1
     Route: 065
  7. BACLOFEN [Concomitant]
     Dosage: 5 MILLIGRAM DAILY; 0-0-1
     Route: 065
  8. ALIZAPRID [Concomitant]
     Dosage: 50 MILLIGRAM DAILY; 1-0-0
     Route: 065
  9. SPIRONOLACTON [Concomitant]
     Dosage: 100 MILLIGRAM DAILY; 1-0-0
     Route: 065
  10. PANKREATIN [Concomitant]
     Dosage: 20000 IU (INTERNATIONAL UNIT) DAILY;
     Route: 065
  11. OMEPRAZOL [Concomitant]
     Dosage: 80 MILLIGRAM DAILY; 1-0-1
     Route: 065
  12. TIOTROPIUMBROMID [Concomitant]
     Dosage: 18 MICROGRAM DAILY; 1-0-0
     Route: 065
  13. SALBUTAMOL-SPRAY [Concomitant]
     Dosage: 2 PUFFS AS REQUIRED
     Route: 055
  14. FORMOTEROL+BECLOMETASON SPRAY [Concomitant]
     Dosage: 6 DOSAGE FORMS DAILY; 2-2-2 PUFFS
     Route: 055
  15. THEOPHYLLIN RETARD [Concomitant]
     Dosage: 375 MILLIGRAM DAILY; 1-0-0
     Route: 065

REACTIONS (5)
  - Hyperaesthesia [Recovered/Resolved]
  - Adjustment disorder [Recovered/Resolved]
  - Drug dependence [Recovered/Resolved]
  - Delirium [Recovered/Resolved]
  - Overdose [Unknown]
